FAERS Safety Report 8059847-5 (Version None)
Quarter: 2012Q1

REPORT INFORMATION
  Report Type: 
  Country: None (occurrence: None)
  Receive Date: 20120120
  Receipt Date: 20120117
  Transmission Date: 20120608
  Serious: Yes (Hospitalization, Other)
  Sender: FDA-Public Use
  Company Number: DE-AMGEN-DEUSP2012000051

PATIENT
  Sex: Female
  Weight: 60 kg

DRUGS (2)
  1. XGEVA [Suspect]
     Indication: PRODUCT USED FOR UNKNOWN INDICATION
     Dosage: 120 MG, UNK
     Route: 058
     Dates: start: 20111130, end: 20111228
  2. FASLODEX [Concomitant]
     Indication: BREAST CANCER
     Dosage: 500 MG, Q2WK
     Route: 030
     Dates: end: 20111219

REACTIONS (1)
  - PANCYTOPENIA [None]
